FAERS Safety Report 19691079 (Version 10)
Quarter: 2022Q4

REPORT INFORMATION
  Report Type: Report from Study
  Country: AU (occurrence: AU)
  Receive Date: 20210812
  Receipt Date: 20221020
  Transmission Date: 20230113
  Serious: Yes (Hospitalization, Other)
  Sender: FDA-Public Use
  Company Number: AU-BRISTOL-MYERS SQUIBB COMPANY-BMS-2021-078400

PATIENT
  Age: 77 Year
  Sex: Female

DRUGS (2)
  1. OPDIVO [Suspect]
     Active Substance: NIVOLUMAB
     Indication: Malignant melanoma
     Dosage: 240 MILLIGRAM
     Route: 042
     Dates: start: 20190211, end: 20200217
  2. DIGOXIN [Suspect]
     Active Substance: DIGOXIN
     Indication: Product used for unknown indication
     Dosage: UNK
     Route: 065

REACTIONS (14)
  - Lower respiratory tract infection [Recovered/Resolved]
  - Bradycardia [Recovered/Resolved]
  - Colorectal adenoma [Recovered/Resolved]
  - Gastrointestinal haemorrhage [Unknown]
  - Rash [Recovered/Resolved]
  - Decreased appetite [Recovering/Resolving]
  - Dyspnoea exertional [Recovered/Resolved]
  - Fatigue [Recovered/Resolved]
  - Cardiomegaly [Unknown]
  - Vomiting [Recovered/Resolved]
  - Nausea [Recovered/Resolved]
  - Muscular weakness [Recovered/Resolved]
  - Weight decreased [Recovering/Resolving]
  - Gastrointestinal angiodysplasia [Recovered/Resolved]

NARRATIVE: CASE EVENT DATE: 20190212
